FAERS Safety Report 20368543 (Version 1)
Quarter: 2022Q1

REPORT INFORMATION
  Report Type: Spontaneous
  Country: GB (occurrence: GB)
  Receive Date: 20220124
  Receipt Date: 20220124
  Transmission Date: 20220423
  Serious: Yes (Other)
  Sender: FDA-Public Use
  Company Number: None

PATIENT
  Age: 41 Year
  Sex: Female

DRUGS (6)
  1. MOMETASONE [Suspect]
     Active Substance: MOMETASONE
     Indication: Rhinitis allergic
     Dosage: 100 UG, QD (ONE SPRAY EACH NOSTRIL )
     Route: 045
     Dates: start: 2019, end: 20220109
  2. CITALOPRAM [Concomitant]
     Active Substance: CITALOPRAM HYDROBROMIDE
     Indication: Product used for unknown indication
     Dosage: 20 MG, QD
     Route: 065
  3. DOXYCYCLINE [Concomitant]
     Active Substance: DOXYCYCLINE
     Indication: Lower respiratory tract infection
     Dosage: 100 MG
     Route: 065
  4. FEXOFENADINE [Concomitant]
     Active Substance: FEXOFENADINE HYDROCHLORIDE
     Indication: Product used for unknown indication
     Dosage: 180 MG
     Route: 065
  5. LEVOTHYROXINE SODIUM [Concomitant]
     Active Substance: LEVOTHYROXINE SODIUM
     Indication: Product used for unknown indication
     Dosage: 100 UG
     Route: 065
  6. MEFENAMIC ACID [Concomitant]
     Active Substance: MEFENAMIC ACID
     Indication: Product used for unknown indication
     Dosage: 500 MG, TID (TAKE DURING PERIODS)
     Route: 065

REACTIONS (8)
  - Oral mucosal erythema [Unknown]
  - Oral disorder [Unknown]
  - Secretion discharge [Unknown]
  - Pain [Unknown]
  - Perioral dermatitis [Unknown]
  - Rash pruritic [Recovering/Resolving]
  - Skin burning sensation [Unknown]
  - Skin irritation [Unknown]

NARRATIVE: CASE EVENT DATE: 20210727
